FAERS Safety Report 6762517-4 (Version None)
Quarter: 2010Q2

REPORT INFORMATION
  Report Type: 
  Country: None (occurrence: None)
  Receive Date: 20100609
  Receipt Date: 20100601
  Transmission Date: 20101027
  Serious: Yes (Other)
  Sender: FDA-Public Use
  Company Number: CA-ASTRAZENECA-2010SE06401

PATIENT
  Age: 53 Year
  Sex: Female
  Weight: 52.6 kg

DRUGS (2)
  1. NEXIUM [Suspect]
     Indication: ABDOMINAL DISTENSION
     Route: 048
     Dates: start: 20091101, end: 20100212
  2. PANTOPRAZOLE [Concomitant]
     Indication: CARDIOVASCULAR DISORDER

REACTIONS (3)
  - AGGRESSION [None]
  - PARAESTHESIA [None]
  - VISUAL ACUITY REDUCED [None]
